FAERS Safety Report 13486621 (Version 2)
Quarter: 2017Q2

REPORT INFORMATION
  Report Type: Spontaneous
  Country: PR (occurrence: PR)
  Receive Date: 20170426
  Receipt Date: 20170516
  Transmission Date: 20170830
  Serious: No
  Sender: FDA-Public Use
  Company Number: PR-PFIZER INC-2017181800

PATIENT
  Age: 8 Decade
  Sex: Female

DRUGS (1)
  1. NEURONTIN [Suspect]
     Active Substance: GABAPENTIN
     Dosage: 1200 MG, DAILY, (400MG DURING THE DAY AND 800MG DURING THE NIGHT)

REACTIONS (1)
  - Alopecia [Unknown]
